FAERS Safety Report 21464861 (Version 3)
Quarter: 2022Q4

REPORT INFORMATION
  Report Type: Spontaneous
  Country: US (occurrence: US)
  Receive Date: 20221017
  Receipt Date: 20221128
  Transmission Date: 20230112
  Serious: Yes (Hospitalization, Other)
  Sender: FDA-Public Use
  Company Number: US-MYLANLABS-2022M1112380

PATIENT
  Age: 61 Year
  Sex: Male
  Weight: 79.38 kg

DRUGS (4)
  1. GABAPENTIN [Suspect]
     Active Substance: GABAPENTIN
     Indication: Product used for unknown indication
     Dosage: UNK
     Route: 065
  2. COVID-19 vaccine [Concomitant]
     Indication: COVID-19
     Dosage: UNK
     Route: 065
     Dates: start: 20210315
  3. LISINOPRIL [Concomitant]
     Active Substance: LISINOPRIL
     Indication: Hypertension
     Dosage: 2 MILLIGRAM
     Route: 065
  4. PFIZER-BIONTECH COVID-19 VACCINE [Concomitant]
     Active Substance: TOZINAMERAN
     Indication: COVID-19
     Dosage: UNK
     Route: 030
     Dates: start: 20210222

REACTIONS (9)
  - Monoplegia [Unknown]
  - Intervertebral discitis [Unknown]
  - Back pain [Unknown]
  - Hypoaesthesia [Unknown]
  - Arthralgia [Unknown]
  - Neck pain [Unknown]
  - Inflammation [Unknown]
  - Nerve compression [Unknown]
  - Drug ineffective [Unknown]

NARRATIVE: CASE EVENT DATE: 20210316
